FAERS Safety Report 16275660 (Version 1)
Quarter: 2019Q2

REPORT INFORMATION
  Report Type: Spontaneous
  Country: US (occurrence: US)
  Receive Date: 20190506
  Receipt Date: 20190506
  Transmission Date: 20190711
  Serious: Yes (Other)
  Sender: FDA-Public Use
  Company Number: US-MYLANLABS-2019M1041768

PATIENT
  Age: 69 Year
  Sex: Male

DRUGS (1)
  1. MILRINONE [Suspect]
     Active Substance: MILRINONE
     Indication: LEFT VENTRICULAR FAILURE
     Route: 050

REACTIONS (3)
  - Eosinophilia [Recovered/Resolved]
  - Dizziness [Recovered/Resolved]
  - Eosinophilic cystitis [Recovered/Resolved]
